FAERS Safety Report 6588982-3 (Version None)
Quarter: 2010Q1

REPORT INFORMATION
  Report Type: 
  Country: None (occurrence: None)
  Receive Date: 20100218
  Receipt Date: 20100208
  Transmission Date: 20100710
  Serious: Yes (Other)
  Sender: FDA-Public Use
  Company Number: JP-PFIZER INC-2010006627

PATIENT
  Age: 89 Year
  Sex: Female

DRUGS (6)
  1. VIBRAMYCIN [Suspect]
     Dosage: 100 MG DAILY
     Route: 048
     Dates: start: 20091101
  2. PERDIPINE [Concomitant]
     Route: 048
     Dates: start: 20041101
  3. MICARDIS [Concomitant]
     Route: 048
     Dates: start: 20041101
  4. MAGNESIUM OXIDE [Concomitant]
     Route: 048
     Dates: start: 20041101
  5. ALESION [Concomitant]
     Route: 048
     Dates: start: 20091101
  6. NICOTINAMIDE [Concomitant]
     Dates: start: 20091101

REACTIONS (2)
  - EOSINOPHIL COUNT INCREASED [None]
  - INTERSTITIAL LUNG DISEASE [None]
